FAERS Safety Report 7601454-X (Version None)
Quarter: 2011Q3

REPORT INFORMATION
  Report Type: 
  Country: None (occurrence: None)
  Receive Date: 20110711
  Receipt Date: 20110701
  Transmission Date: 20111222
  Serious: Yes (Hospitalization)
  Sender: FDA-Public Use
  Company Number: DE-US-EMD SERONO, INC.-7063975

PATIENT
  Sex: Female

DRUGS (1)
  1. REBIF [Suspect]
     Indication: PRODUCT USED FOR UNKNOWN INDICATION
     Route: 058
     Dates: start: 20110502

REACTIONS (4)
  - HEPATIC ENZYME INCREASED [None]
  - ABDOMINAL PAIN [None]
  - COAGULATION TEST ABNORMAL [None]
  - APPENDIX DISORDER [None]
